FAERS Safety Report 18006577 (Version 5)
Quarter: 2023Q1

REPORT INFORMATION
  Report Type: Spontaneous
  Country: AU (occurrence: AU)
  Receive Date: 20200710
  Receipt Date: 20230119
  Transmission Date: 20230417
  Serious: Yes (Death, Life-Threatening, Hospitalization, Other)
  Sender: FDA-Public Use
  Company Number: AU-PFIZER INC-2020263283

PATIENT
  Age: 22 Month
  Sex: Male
  Weight: 9.585 kg

DRUGS (24)
  1. LORLATINIB [Suspect]
     Active Substance: LORLATINIB
     Indication: Neuroblastoma
     Dosage: 50 MG, DAILY VIA PO/NG
     Route: 048
     Dates: start: 20200325, end: 20200705
  2. DEXAMETHASONE [Concomitant]
     Active Substance: DEXAMETHASONE
     Indication: Brain oedema
     Dosage: 2 MG, 2X/DAY
     Route: 048
  3. DEXAMETHASONE [Concomitant]
     Active Substance: DEXAMETHASONE
     Indication: Chemotherapy
     Dosage: 1 MG, 2X/DAY
     Route: 048
     Dates: start: 20200618, end: 20200625
  4. DEXAMETHASONE [Concomitant]
     Active Substance: DEXAMETHASONE
     Indication: Antiinflammatory therapy
     Dosage: 2 MG, 12 HOURLYVIA NASTOGASTRIC
     Dates: start: 20200703, end: 20200707
  5. DEXAMETHASONE [Concomitant]
     Active Substance: DEXAMETHASONE
     Indication: Nausea
  6. LEVETIRACETAM [Concomitant]
     Active Substance: LEVETIRACETAM
     Indication: Seizure
     Dosage: 90 MG, 2X/DAY
     Route: 048
     Dates: start: 20200618, end: 20200625
  7. OMEPRAZOLE [Concomitant]
     Active Substance: OMEPRAZOLE
     Indication: Vomiting
     Dosage: 10 MG, DAILY
     Route: 048
     Dates: start: 20200618, end: 20200707
  8. OMEPRAZOLE [Concomitant]
     Active Substance: OMEPRAZOLE
     Indication: Gastrointestinal disorder prophylaxis
  9. GABAPENTIN [Concomitant]
     Active Substance: GABAPENTIN
     Indication: Pain
     Dosage: 100 MG, 2X/DAY VIA ORAL/NASTOGASTRIC
     Dates: start: 20200618, end: 20200625
  10. ATROPINE [Concomitant]
     Active Substance: ATROPINE
     Indication: Anaesthesia
     Dosage: 240 UG, SINGLE
     Route: 042
     Dates: start: 20200622, end: 20200622
  11. CEFEPIME [Concomitant]
     Active Substance: CEFEPIME HYDROCHLORIDE
     Indication: Sepsis
     Dosage: 650 MG, 8 HOURLY
     Route: 042
     Dates: start: 20200619, end: 20200625
  12. FENTANYL [Concomitant]
     Active Substance: FENTANYL
     Indication: Anaesthesia
     Dosage: 10 MG, TWICE
     Route: 042
     Dates: start: 20200622, end: 20200622
  13. FLUCONAZOLE [Concomitant]
     Active Substance: FLUCONAZOLE
     Indication: Candida infection
     Dosage: 160 MG, DAILYVIA MUCOSAL
     Dates: start: 20200621, end: 20200624
  14. GADOBUTROL [Concomitant]
     Active Substance: GADOBUTROL
     Indication: Anaesthesia
     Dosage: 100 MG, SINGLE
     Route: 042
     Dates: start: 20200617, end: 20200617
  15. GENTAMICIN [Concomitant]
     Active Substance: GENTAMICIN
     Indication: Febrile neutropenia
     Dosage: 95 MG, DAILY
     Route: 042
     Dates: start: 20200618, end: 20200620
  16. HYDROCORTISONE [Concomitant]
     Active Substance: HYDROCORTISONE
     Indication: Adrenocortical insufficiency acute
     Dosage: 50 MG, SINGLE
     Route: 042
     Dates: start: 20200618, end: 20200618
  17. NEOSTIGMINE [Concomitant]
     Active Substance: NEOSTIGMINE
     Indication: Anaesthesia
     Dosage: 0.5 MG, SINGLE
     Route: 042
     Dates: start: 20200622, end: 20200622
  18. ONDANSETRON [Concomitant]
     Active Substance: ONDANSETRON
     Indication: Anaesthesia
     Dosage: 1 MG, SINGLE
     Route: 042
     Dates: start: 20200630, end: 20200630
  19. PANADOL [Concomitant]
     Active Substance: ACETAMINOPHEN
     Indication: Analgesic therapy
     Dosage: 190 MG, AS NEEDED VIA INFUSION/ORAL
     Route: 048
     Dates: start: 20200622, end: 20200707
  20. PIPERACILLIN SODIUM\TAZOBACTAM SODIUM [Concomitant]
     Active Substance: PIPERACILLIN SODIUM\TAZOBACTAM SODIUM
     Indication: Febrile neutropenia
     Dosage: 1270 MG, 6 HOURLY
     Route: 042
     Dates: start: 20200618, end: 20200619
  21. PROPOFOL [Concomitant]
     Active Substance: PROPOFOL
     Indication: Anaesthesia
     Dosage: 40 MG, SINGLE
     Route: 042
     Dates: start: 20200617, end: 20200617
  22. SUGAMMADEX [Concomitant]
     Active Substance: SUGAMMADEX
     Indication: Anaesthesia
     Dosage: 40 MG, SINGLE
     Route: 042
     Dates: start: 20200630, end: 20200630
  23. SULFAMETHOXAZOLE AND TRIMETHOPRIM [Concomitant]
     Active Substance: SULFAMETHOXAZOLE\TRIMETHOPRIM
     Indication: Infection
     Dosage: 64 MG, 6 HOURLY
     Route: 042
     Dates: start: 20200619, end: 20200725
  24. VECURONIUM [Concomitant]
     Active Substance: VECURONIUM BROMIDE
     Indication: Anaesthesia
     Dosage: 1 MG, SINGLE
     Route: 042
     Dates: start: 20200630, end: 20200630

REACTIONS (5)
  - Intracranial tumour haemorrhage [Fatal]
  - Neoplasm progression [Fatal]
  - Gamma-glutamyltransferase increased [Not Recovered/Not Resolved]
  - Off label use [Unknown]
  - Off label use [Unknown]

NARRATIVE: CASE EVENT DATE: 20200703
